FAERS Safety Report 4933833-3 (Version None)
Quarter: 2006Q1

REPORT INFORMATION
  Report Type: 
  Country: None (occurrence: None)
  Receive Date: 20060306
  Receipt Date: 20060224
  Transmission Date: 20060701
  Serious: Yes (Disabling)
  Sender: FDA-Public Use
  Company Number: GB-MERCK-0602GBR00146

PATIENT
  Age: 80 Year

DRUGS (1)
  1. ZOCOR [Suspect]
     Indication: BLOOD CHOLESTEROL INCREASED
     Route: 048
     Dates: start: 20050701, end: 20050901

REACTIONS (4)
  - HEPATITIS [None]
  - LIVER FUNCTION TEST ABNORMAL [None]
  - MYOSITIS [None]
  - PNEUMONITIS [None]
